FAERS Safety Report 5694206-1 (Version None)
Quarter: 2008Q2

REPORT INFORMATION
  Report Type: 
  Country: None (occurrence: None)
  Receive Date: 20080402
  Receipt Date: 20080319
  Transmission Date: 20081010
  Serious: Yes (Other)
  Sender: FDA-Public Use
  Company Number: 070125-0000141

PATIENT
  Age: 39 Year
  Sex: Female

DRUGS (4)
  1. TRANXILIUM TABLETS (CLORAZEPATE DIPOTASSIUM) [Suspect]
     Indication: DEPRESSION
     Dosage: 20 MG; ; PO
     Route: 048
     Dates: end: 20060321
  2. ESCITALOPRAM [Suspect]
     Indication: DEPRESSION
     Dosage: ; PO
     Route: 048
  3. ETHANOL (ETHANOL) [Suspect]
     Indication: ALCOHOL ABUSE
     Dosage: ; PO
     Route: 048
     Dates: end: 20060201
  4. LORAZEPAM [Concomitant]

REACTIONS (3)
  - ABORTION INDUCED [None]
  - DRUG EXPOSURE DURING PREGNANCY [None]
  - INFECTION [None]
